FAERS Safety Report 9993403 (Version 1)
Quarter: 2014Q1

REPORT INFORMATION
  Report Type: Spontaneous
  Country: IN (occurrence: IN)
  Receive Date: 20140310
  Receipt Date: 20140310
  Transmission Date: 20141002
  Serious: Yes (Life-Threatening, Hospitalization)
  Sender: FDA-Public Use
  Company Number: PHHY2014IN025044

PATIENT
  Sex: 0

DRUGS (4)
  1. RIFAMPICIN [Suspect]
     Indication: PULMONARY TUBERCULOSIS
  2. ISONIAZID [Concomitant]
     Indication: PULMONARY TUBERCULOSIS
  3. PYRAZINAMIDE [Concomitant]
     Indication: PULMONARY TUBERCULOSIS
  4. ETHAMBUTOL [Concomitant]
     Indication: PULMONARY TUBERCULOSIS

REACTIONS (4)
  - Adrenocortical insufficiency acute [Recovered/Resolved]
  - Hypotension [Recovered/Resolved]
  - Vomiting [Recovered/Resolved]
  - Chest pain [Unknown]
